FAERS Safety Report 25841119 (Version 5)
Quarter: 2025Q4

REPORT INFORMATION
  Report Type: Report from Study
  Country: US (occurrence: US)
  Receive Date: 20250924
  Receipt Date: 20251216
  Transmission Date: 20260117
  Serious: Yes (Hospitalization, Other)
  Sender: ABBVIE
  Company Number: US-ABBVIE-6472353

PATIENT
  Age: 73 Year
  Sex: Female

DRUGS (6)
  1. SKYRIZI [Suspect]
     Active Substance: RISANKIZUMAB-RZAA
     Indication: Crohn^s disease
     Dosage: STRENGTH:180MG/1.2M?SOLUTION FOR INJECTION IN CARTRIDGE
     Route: 058
     Dates: start: 20250930
  2. SKYRIZI [Suspect]
     Active Substance: RISANKIZUMAB-RZAA
     Dosage: STRENGTH:180MG/1.2M?SOLUTION FOR INJECTION IN CARTRIDGE
     Route: 058
     Dates: start: 20241212, end: 20250701
  3. SKYRIZI [Suspect]
     Active Substance: RISANKIZUMAB-RZAA
     Dosage: TIME INTERVAL: TOTAL: WEEK 12?STRENGTH:180MG/1.2M?SOLUTION FOR INJECTION IN CARTRIDGE
     Route: 058
     Dates: start: 20250306, end: 20250306
  4. SKYRIZI [Suspect]
     Active Substance: RISANKIZUMAB-RZAA
     Indication: Crohn^s disease
     Dosage: WEEK 0
     Route: 042
     Dates: start: 20241212
  5. SKYRIZI [Suspect]
     Active Substance: RISANKIZUMAB-RZAA
     Indication: Crohn^s disease
     Dosage: WEEK 4
     Route: 042
     Dates: start: 202501, end: 202501
  6. SKYRIZI [Suspect]
     Active Substance: RISANKIZUMAB-RZAA
     Indication: Crohn^s disease
     Dosage: WEEK 8
     Route: 042
     Dates: start: 202502, end: 202502

REACTIONS (16)
  - Spinal operation [Not Recovered/Not Resolved]
  - Constipation [Unknown]
  - Constipation [Unknown]
  - Frequent bowel movements [Not Recovered/Not Resolved]
  - Spinal pain [Recovering/Resolving]
  - Arthralgia [Not Recovered/Not Resolved]
  - Insomnia [Unknown]
  - Gastrointestinal sounds abnormal [Not Recovered/Not Resolved]
  - Arthritis [Unknown]
  - Diarrhoea [Not Recovered/Not Resolved]
  - Calcinosis [Not Recovered/Not Resolved]
  - Blindness [Not Recovered/Not Resolved]
  - Movement disorder [Unknown]
  - Fatigue [Unknown]
  - Eye disorder [Unknown]
  - Blood iron increased [Unknown]

NARRATIVE: CASE EVENT DATE: 20250101
